FAERS Safety Report 21105187 (Version 2)
Quarter: 2022Q3

REPORT INFORMATION
  Report Type: Report from Study
  Country: FR (occurrence: FR)
  Receive Date: 20220720
  Receipt Date: 20220906
  Transmission Date: 20221027
  Serious: Yes (Hospitalization, Other)
  Sender: FDA-Public Use
  Company Number: FR-BRISTOL-MYERS SQUIBB COMPANY-2022-075538

PATIENT
  Age: 84 Year
  Sex: Male
  Weight: 90 kg

DRUGS (4)
  1. LENALIDOMIDE [Suspect]
     Active Substance: LENALIDOMIDE
     Indication: Plasma cell myeloma
     Dosage: 25 MG, THEN 15 MG THEN 5 MG (DAILY 21D/28D)
     Route: 048
     Dates: start: 20180104, end: 20220706
  2. DARATUMUMAB [Suspect]
     Active Substance: DARATUMUMAB
     Indication: Plasma cell myeloma
     Dosage: 60 MG (1800 MG,-
     Route: 058
     Dates: start: 20200701
  3. DEXAMETHASONE [Concomitant]
     Active Substance: DEXAMETHASONE
     Indication: Plasma cell myeloma
     Route: 048
  4. DEXAMETHASONE [Concomitant]
     Active Substance: DEXAMETHASONE
     Route: 048
     Dates: start: 20160623, end: 20190509

REACTIONS (1)
  - Cerebrovascular accident [Recovered/Resolved]

NARRATIVE: CASE EVENT DATE: 20220702
